FAERS Safety Report 24613491 (Version 1)
Quarter: 2024Q4

REPORT INFORMATION
  Report Type: Spontaneous
  Country: US (occurrence: US)
  Receive Date: 20241113
  Receipt Date: 20241113
  Transmission Date: 20250115
  Serious: No
  Sender: ORPHALAN
  Company Number: US-ORPHALAN-US-ORP-24-00004

PATIENT
  Age: 59 Year
  Sex: Female
  Weight: 61.2 kg

DRUGS (16)
  1. CUVRIOR [Suspect]
     Active Substance: TRIENTINE TETRAHYDROCHLORIDE
     Indication: Hepato-lenticular degeneration
     Dosage: UNK UNK, UNK
     Route: 048
     Dates: start: 20230918
  2. ZYRTEC [Concomitant]
     Active Substance: CETIRIZINE HYDROCHLORIDE
     Indication: Headache
     Dosage: 5 MILLIGRAM, PRN
     Route: 048
     Dates: start: 2016
  3. TYLENOL [Concomitant]
     Active Substance: ACETAMINOPHEN
     Indication: Headache
     Dosage: 500 MILLIGRAM, PRN
     Route: 048
     Dates: start: 2015
  4. TYLENOL [Concomitant]
     Active Substance: ACETAMINOPHEN
     Indication: Arthralgia
  5. VITAMIN C [Concomitant]
     Active Substance: ASCORBIC ACID
     Indication: Product used for unknown indication
     Dosage: 1000 MILLIGRAM, QD
     Route: 048
     Dates: start: 2017
  6. CALCIUM\VITAMIN D [Concomitant]
     Active Substance: CALCIUM\VITAMIN D
     Indication: Product used for unknown indication
     Dosage: 600 MILLIGRAM, QD
     Route: 048
     Dates: start: 2017
  7. HERBALS\TURMERIC [Concomitant]
     Active Substance: HERBALS\TURMERIC
     Indication: Product used for unknown indication
     Dosage: 500 MILLIGRAM, PRN
     Route: 048
     Dates: start: 2017
  8. BEANO [Concomitant]
     Active Substance: ASPERGILLUS NIGER .ALPHA.-GALACTOSIDASE
     Indication: Prophylaxis
     Dosage: 2 DOSAGE FORM, PRN
     Route: 048
     Dates: start: 2017
  9. BEANO [Concomitant]
     Active Substance: ASPERGILLUS NIGER .ALPHA.-GALACTOSIDASE
     Indication: Abdominal distension
  10. CYANOCOBALAMIN\DEXPANTHENOL\NIACINAMIDE\PYRIDOXINE HYDROCHLORIDE\RIBOF [Concomitant]
     Active Substance: CYANOCOBALAMIN\DEXPANTHENOL\NIACINAMIDE\PYRIDOXINE HYDROCHLORIDE\RIBOFLAVIN 5^-PHOSPHATE SODIUM\THIA
     Indication: Asthenia
     Dosage: 1 UNK, QD
     Route: 048
     Dates: start: 2017
  11. DIETARY SUPPLEMENT [Concomitant]
     Active Substance: DIETARY SUPPLEMENT
     Indication: Prophylaxis
     Dosage: 900 MILLIGRAM, QD
     Route: 048
     Dates: start: 2018
  12. Saline Nose Spray [Concomitant]
     Indication: Hypersensitivity
     Dosage: 1 DOSAGE FORM, PRN
     Route: 045
     Dates: start: 20200101
  13. Fluticasone propionate (Aller- Flo) nasal spray [Concomitant]
     Indication: Hypersensitivity
     Dosage: 50 MICROGRAM, PRN
     Route: 045
     Dates: start: 20200101
  14. VITAMIN E [Concomitant]
     Active Substance: .ALPHA.-TOCOPHEROL
     Indication: Product used for unknown indication
     Dosage: 670 MILLIGRAM, QD
     Route: 048
     Dates: start: 20220610
  15. Estradiol (estrogen cream) [Concomitant]
     Indication: Product used for unknown indication
     Dosage: 0.01 MILLIGRAM, WEEKLY
     Route: 061
     Dates: start: 202211
  16. MAGNESIUM CITRATE [Concomitant]
     Active Substance: MAGNESIUM CITRATE
     Indication: Product used for unknown indication
     Dosage: 400 MILLIGRAM, QD
     Route: 048
     Dates: start: 202301

REACTIONS (1)
  - Arthralgia [Recovering/Resolving]

NARRATIVE: CASE EVENT DATE: 20231001
